FAERS Safety Report 15027536 (Version 1)
Quarter: 2018Q2

REPORT INFORMATION
  Report Type: Spontaneous
  Country: US (occurrence: US)
  Receive Date: 20180525
  Receipt Date: 20180525
  Transmission Date: 20180711
  Serious: Yes (Hospitalization)
  Sender: FDA-Public Use
  Company Number: None

PATIENT
  Sex: Male
  Weight: 65.35 kg

DRUGS (2)
  1. 5-FLUOROURACIL (5-FU) [Suspect]
     Active Substance: FLUOROURACIL
     Dates: end: 20160628
  2. CISPLATIN. [Suspect]
     Active Substance: CISPLATIN
     Dates: end: 20160624

REACTIONS (13)
  - Pneumonia klebsiella [None]
  - Nausea [None]
  - Melaena [None]
  - Pain [None]
  - Staphylococcal infection [None]
  - Photophobia [None]
  - Musculoskeletal stiffness [None]
  - Gastric ulcer [None]
  - Otitis media acute [None]
  - Vomiting [None]
  - Tympanic membrane perforation [None]
  - Candida infection [None]
  - Osteoradionecrosis [None]

NARRATIVE: CASE EVENT DATE: 20160718
